FAERS Safety Report 11735256 (Version 1)
Quarter: 2015Q4

REPORT INFORMATION
  Report Type: Spontaneous
  Country: GB (occurrence: GB)
  Receive Date: 20151113
  Receipt Date: 20151113
  Transmission Date: 20160304
  Serious: Yes (Hospitalization, Other)
  Sender: FDA-Public Use
  Company Number: GB-JNJFOC-20151111148

PATIENT
  Age: 37 Year
  Weight: 79 kg

DRUGS (4)
  1. REMICADE [Suspect]
     Active Substance: INFLIXIMAB
     Indication: CROHN^S DISEASE
     Dosage: 5 (UNSPECIFIED DOSE AND DOSAGE)
     Route: 042
  2. AZATHIOPRINE. [Concomitant]
     Active Substance: AZATHIOPRINE
     Route: 065
  3. PENTASA [Concomitant]
     Active Substance: MESALAMINE
     Route: 065
  4. WARFARINE [Concomitant]
     Active Substance: WARFARIN

REACTIONS (3)
  - Chills [Recovering/Resolving]
  - Tachycardia [Recovering/Resolving]
  - Body temperature increased [Recovering/Resolving]
